FAERS Safety Report 16642703 (Version 1)
Quarter: 2019Q3

REPORT INFORMATION
  Report Type: Spontaneous
  Country: EG (occurrence: EG)
  Receive Date: 20190729
  Receipt Date: 20190729
  Transmission Date: 20191004
  Serious: Yes (Life-Threatening, Hospitalization, Other)
  Sender: FDA-Public Use
  Company Number: EG-PFIZER INC-2019320645

PATIENT
  Age: 11 Year
  Sex: Male
  Weight: 35 kg

DRUGS (6)
  1. FENTANYL. [Concomitant]
     Active Substance: FENTANYL
     Indication: SEDATIVE THERAPY
     Dosage: 5 DF, 1X/DAY
     Route: 042
     Dates: start: 20181228, end: 20181229
  2. ALPHA CHYMOTRYPSIN [Suspect]
     Active Substance: CHYMOTRYPSIN
     Indication: OEDEMA
     Dosage: 1 DF, 2X/DAY
     Route: 030
     Dates: start: 20181230, end: 20190102
  3. ACETAMINOPHEN. [Suspect]
     Active Substance: ACETAMINOPHEN
     Indication: PYREXIA
     Dosage: 1 DF PER 4 HOURS
     Dates: start: 20181230, end: 20190102
  4. ROCEPHIN [Concomitant]
     Active Substance: CEFTRIAXONE SODIUM
     Indication: ANTIBIOTIC THERAPY
     Dosage: 1 DF, 1X/DAY
     Route: 042
     Dates: start: 20181226, end: 20190112
  5. DALACIN C [Suspect]
     Active Substance: CLINDAMYCIN PHOSPHATE
     Indication: ANTIBIOTIC THERAPY
     Dosage: 0.5 DF, 3X/DAY
     Route: 042
     Dates: start: 20181230, end: 20190101
  6. DANSET [Suspect]
     Active Substance: ONDANSETRON HYDROCHLORIDE
     Indication: VOMITING
     Dosage: 0.5 DF, 3X/DAY
     Dates: start: 20181229, end: 20190102

REACTIONS (2)
  - Jaundice [Recovered/Resolved]
  - Hepatic enzyme increased [Recovered/Resolved]

NARRATIVE: CASE EVENT DATE: 20190101
